FAERS Safety Report 15458091 (Version 1)
Quarter: 2018Q4

REPORT INFORMATION
  Report Type: Spontaneous
  Country: US (occurrence: US)
  Receive Date: 20181003
  Receipt Date: 20181003
  Transmission Date: 20190204
  Serious: No
  Sender: FDA-Public Use
  Company Number: US-DRREDDYS-USA/USA/18/0102804

PATIENT
  Age: 53 Year
  Sex: Female

DRUGS (1)
  1. BUPRENORPHINE AND NALOXONE SUBLINGUAL FILM 4 MG/1 MG AND 12 MG/3 MG [Suspect]
     Active Substance: BUPRENORPHINE\NALOXONE
     Indication: PRODUCT USED FOR UNKNOWN INDICATION
     Dosage: 4MG/1MG
     Route: 065

REACTIONS (3)
  - Myalgia [Recovered/Resolved]
  - Arthralgia [Recovered/Resolved]
  - Withdrawal syndrome [Recovered/Resolved]
